FAERS Safety Report 9990620 (Version 1)
Quarter: 2014Q1

REPORT INFORMATION
  Report Type: Report from Study
  Country: US (occurrence: US)
  Receive Date: 20140310
  Receipt Date: 20140310
  Transmission Date: 20141002
  Serious: No
  Sender: FDA-Public Use
  Company Number: US-ABBVIE-13P-163-1133229-00

PATIENT
  Age: 64 Year
  Sex: Male

DRUGS (4)
  1. HUMIRA [Suspect]
     Indication: PSORIATIC ARTHROPATHY
     Dates: start: 201212
  2. PROPECIA [Concomitant]
     Indication: ALOPECIA
  3. MULTIVITAMIN [Concomitant]
     Indication: VITAMIN SUPPLEMENTATION
  4. ASA [Concomitant]
     Indication: PAIN

REACTIONS (3)
  - Dermatitis contact [Not Recovered/Not Resolved]
  - Tooth extraction [Not Recovered/Not Resolved]
  - Gingival swelling [Not Recovered/Not Resolved]
